FAERS Safety Report 21861525 (Version 8)
Quarter: 2025Q1

REPORT INFORMATION
  Report Type: Spontaneous
  Country: US (occurrence: US)
  Receive Date: 20230113
  Receipt Date: 20250210
  Transmission Date: 20250408
  Serious: No
  Sender: PFIZER
  Company Number: US-PFIZER INC-PV202200085501

PATIENT
  Age: 72 Year
  Sex: Male

DRUGS (2)
  1. EUCRISA [Suspect]
     Active Substance: CRISABOROLE
     Indication: Psoriasis
  2. EUCRISA [Suspect]
     Active Substance: CRISABOROLE
     Route: 061

REACTIONS (2)
  - Hypoacusis [Unknown]
  - Off label use [Unknown]
